FAERS Safety Report 6559102-6 (Version None)
Quarter: 2010Q1

REPORT INFORMATION
  Report Type: 
  Country: None (occurrence: None)
  Receive Date: 20100129
  Receipt Date: 20100121
  Transmission Date: 20100710
  Serious: Yes (Other)
  Sender: FDA-Public Use
  Company Number: US-JNJCH-2010002153

PATIENT
  Age: 93 Year
  Sex: Male
  Weight: 68 kg

DRUGS (3)
  1. BENADRYL [Suspect]
     Indication: SWELLING FACE
     Dosage: TEXT:2 TABLETS EVERY 4 HOURS
     Route: 048
     Dates: start: 20100120, end: 20100121
  2. METOPROLOL [Concomitant]
     Indication: HYPERTENSION
     Dosage: TEXT:UNSPECIFIED DAILY
     Route: 065
  3. DARVON [Concomitant]
     Indication: CARDIAC DISORDER
     Dosage: TEXT:UNSPECIFIED DAILY
     Route: 065

REACTIONS (3)
  - FEELING DRUNK [None]
  - GAIT DISTURBANCE [None]
  - OFF LABEL USE [None]
